FAERS Safety Report 19120657 (Version 1)
Quarter: 2021Q2

REPORT INFORMATION
  Report Type: Spontaneous
  Country: US (occurrence: US)
  Receive Date: 20210410
  Receipt Date: 20210410
  Transmission Date: 20210717
  Serious: Yes (Other)
  Sender: FDA-Public Use
  Company Number: None

PATIENT
  Age: 56 Year
  Sex: Male
  Weight: 110.25 kg

DRUGS (6)
  1. PROPRANOLOL [Concomitant]
     Active Substance: PROPRANOLOL HYDROCHLORIDE
  2. ZYPREXA [Suspect]
     Active Substance: OLANZAPINE
     Indication: PSYCHOTIC DISORDER
     Dosage: ?          QUANTITY:1 TABLET(S);?
     Route: 048
  3. TESTOSTERONE GEL [Concomitant]
     Active Substance: TESTOSTERONE
  4. SEROQUEL XR [Suspect]
     Active Substance: QUETIAPINE FUMARATE
     Indication: PSYCHOTIC DISORDER
     Dosage: ?          QUANTITY:2 TABLET(S);?
     Route: 048
  5. PROBIOTIC [Concomitant]
     Active Substance: PROBIOTICS NOS
  6. CENTRUM SILVER FOR MEN OVER 50 [Concomitant]

REACTIONS (2)
  - Blood test abnormal [None]
  - Weight increased [None]

NARRATIVE: CASE EVENT DATE: 20210410
